FAERS Safety Report 21133971 (Version 1)
Quarter: 2022Q3

REPORT INFORMATION
  Report Type: Spontaneous
  Country: US (occurrence: US)
  Receive Date: 20220726
  Receipt Date: 20220726
  Transmission Date: 20221027
  Serious: No
  Sender: FDA-Public Use
  Company Number: US-OYSTER POINT PHARMA, INC.-2022OYS00635

PATIENT
  Age: 71 Year
  Sex: Female
  Weight: 46.259 kg

DRUGS (7)
  1. TYRVAYA [Suspect]
     Active Substance: VARENICLINE TARTRATE
     Indication: Dry eye
     Dosage: 1 SPRAY IN EACH NOSTRIL, 2X/DAY
     Route: 045
     Dates: start: 20220615, end: 20220615
  2. TYRVAYA [Suspect]
     Active Substance: VARENICLINE TARTRATE
     Dosage: 1 SPRAY IN EACH NOSTRIL, 2X/DAY
     Route: 045
     Dates: start: 20220615, end: 20220615
  3. CALCIUM [Concomitant]
     Active Substance: CALCIUM
     Dosage: UNK
  4. VITAMIN D [Concomitant]
     Active Substance: VITAMIN D NOS
     Dosage: UNK
  5. ESTRADIOL [Concomitant]
     Active Substance: ESTRADIOL
     Dosage: UNK
     Route: 067
  6. RESTASIS [Concomitant]
     Active Substance: CYCLOSPORINE
     Dosage: 1 DROP, 2X/DAY (IN MORNING AND EVENING)
  7. SYSTANE (HYPROMELLOSE 2910 (4000 MPA.S)) [Concomitant]
     Active Substance: HYPROMELLOSE 2910 (4000 MPA.S)
     Dosage: 5 TO 6 TIMES A DAY

REACTIONS (15)
  - Paraesthesia oral [Recovering/Resolving]
  - Lip swelling [Recovered/Resolved]
  - Lip blister [Recovered/Resolved]
  - Oral discomfort [Recovering/Resolving]
  - Hypoaesthesia oral [Recovered/Resolved]
  - Lip erythema [Recovered/Resolved]
  - Lip pain [Recovered/Resolved]
  - Fatigue [Recovering/Resolving]
  - Nasal congestion [Recovering/Resolving]
  - Feeling hot [Recovering/Resolving]
  - Swelling face [Recovered/Resolved]
  - Hypoaesthesia [Recovered/Resolved]
  - Accidental exposure to product [Recovered/Resolved]
  - Device difficult to use [Recovered/Resolved]
  - Product delivery mechanism issue [Recovered/Resolved]

NARRATIVE: CASE EVENT DATE: 20220615
